FAERS Safety Report 7224220-6 (Version None)
Quarter: 2011Q1

REPORT INFORMATION
  Report Type: 
  Country: None (occurrence: None)
  Receive Date: 20110106
  Receipt Date: 20110106
  Transmission Date: 20110831
  Serious: Yes (Hospitalization)
  Sender: FDA-Public Use
  Company Number: None

PATIENT
  Sex: Female
  Weight: 96.82 kg

DRUGS (2)
  1. TAXOL [Suspect]
     Dosage: 160 MG
     Dates: end: 20101008
  2. CARBOPLATIN [Suspect]
     Dosage: 689 MG
     Dates: end: 20101008

REACTIONS (7)
  - DYSPNOEA [None]
  - MALIGNANT PLEURAL EFFUSION [None]
  - NEUTROPENIA [None]
  - LUNG CONSOLIDATION [None]
  - PNEUMONIA [None]
  - PULMONARY OEDEMA [None]
  - BLOOD CREATININE ABNORMAL [None]
